FAERS Safety Report 14934895 (Version 2)
Quarter: 2018Q4

REPORT INFORMATION
  Report Type: Spontaneous
  Country: US (occurrence: US)
  Receive Date: 20180524
  Receipt Date: 20181022
  Transmission Date: 20190204
  Serious: Yes (Other)
  Sender: FDA-Public Use
  Company Number: US-PURDUE-USA-2018-0143706

PATIENT

DRUGS (3)
  1. OXYCONTIN [Suspect]
     Active Substance: OXYCODONE HYDROCHLORIDE
     Dosage: (3 X 80 MG) 240 MG, DAILY
     Route: 048
  2. OXYCONTIN [Suspect]
     Active Substance: OXYCODONE HYDROCHLORIDE
     Dosage: 10 MG, UNK
     Route: 048
     Dates: start: 1998
  3. OXYCONTIN [Suspect]
     Active Substance: OXYCODONE HYDROCHLORIDE
     Indication: PAIN
     Dosage: (2 X 80 MG) 160 MG, DAILY
     Route: 048

REACTIONS (10)
  - Tenosynovitis [Unknown]
  - Neck pain [Unknown]
  - Drug tolerance [Unknown]
  - Impaired work ability [Unknown]
  - Unevaluable event [Unknown]
  - Pain in extremity [Unknown]
  - Fear [Unknown]
  - Drug withdrawal syndrome [Unknown]
  - Back pain [Unknown]
  - Product dose omission [Unknown]

NARRATIVE: CASE EVENT DATE: 20181010
